FAERS Safety Report 21700162 (Version 1)
Quarter: 2022Q4

REPORT INFORMATION
  Report Type: Spontaneous
  Country: US (occurrence: US)
  Receive Date: 20221208
  Receipt Date: 20221208
  Transmission Date: 20230113
  Serious: Yes (Hospitalization, Other)
  Sender: FDA-Public Use
  Company Number: US-AMGEN-USASP2022210682

PATIENT
  Age: 67 Year
  Sex: Male

DRUGS (5)
  1. CINACALCET HYDROCHLORIDE [Suspect]
     Active Substance: CINACALCET HYDROCHLORIDE
     Indication: Hyperparathyroidism tertiary
     Dosage: UNK
     Route: 065
  2. RITUXIMAB [Suspect]
     Active Substance: RITUXIMAB
     Indication: Diffuse large B-cell lymphoma
     Dosage: UNK
     Route: 065
  3. CYCLOPHOSPHAMIDE [Concomitant]
     Active Substance: CYCLOPHOSPHAMIDE
     Indication: Diffuse large B-cell lymphoma
  4. DOXORUBICIN [Concomitant]
     Active Substance: DOXORUBICIN
     Indication: Diffuse large B-cell lymphoma
  5. PREDNISONE [Concomitant]
     Active Substance: PREDNISONE
     Indication: Diffuse large B-cell lymphoma

REACTIONS (11)
  - Acute kidney injury [Unknown]
  - Epstein-Barr virus infection [Unknown]
  - Diffuse large B-cell lymphoma [Unknown]
  - Unevaluable event [Unknown]
  - Asthenia [Unknown]
  - Blood parathyroid hormone increased [Unknown]
  - Fatigue [Unknown]
  - Hypercalcaemia [Recovered/Resolved]
  - Drug effective for unapproved indication [Unknown]
  - Therapy non-responder [Unknown]
  - Off label use [Unknown]
